FAERS Safety Report 4290029-9 (Version None)
Quarter: 2004Q1

REPORT INFORMATION
  Report Type: 
  Country: None (occurrence: None)
  Receive Date: 20040210
  Receipt Date: 20030113
  Transmission Date: 20041129
  Serious: Yes (Hospitalization, Disabling, Other)
  Sender: FDA-Public Use
  Company Number: WAES 0301USA01106

PATIENT
  Age: 40 Year
  Sex: Male
  Weight: 105 kg

DRUGS (6)
  1. CHLORPHENIRAMINE MALEATE AND PSEUDOEPHEDRINE HCL [Concomitant]
  2. LISINOPRIL [Concomitant]
  3. MECLIZINE [Concomitant]
  4. ACIPHEX [Concomitant]
  5. VIOXX [Suspect]
     Indication: POLYARTHRITIS
     Route: 048
     Dates: start: 20020708, end: 20020824
  6. VIOXX [Suspect]
     Indication: BURSITIS
     Route: 048
     Dates: start: 20020708, end: 20020824

REACTIONS (9)
  - CARDIOVASCULAR DISORDER [None]
  - CEREBROVASCULAR ACCIDENT [None]
  - DIZZINESS [None]
  - HAEMORRHOIDAL HAEMORRHAGE [None]
  - IMPAIRED WORK ABILITY [None]
  - PALPITATIONS [None]
  - RENAL FAILURE [None]
  - RHEUMATOID ARTHRITIS [None]
  - URINARY TRACT OBSTRUCTION [None]
